FAERS Safety Report 8447541-8 (Version None)
Quarter: 2012Q2

REPORT INFORMATION
  Report Type: 
  Country: None (occurrence: None)
  Receive Date: 20120612
  Receipt Date: 20110607
  Transmission Date: 20120825
  Serious: Yes (Other)
  Sender: FDA-Public Use
  Company Number: 800092

PATIENT

DRUGS (1)
  1. MURINE EAR DROPS SYSTEM CANADA [Suspect]

REACTIONS (4)
  - EAR HAEMORRHAGE [None]
  - OTORRHOEA [None]
  - TYMPANIC MEMBRANE PERFORATION [None]
  - PURULENCE [None]
